FAERS Safety Report 25110251 (Version 3)
Quarter: 2025Q2

REPORT INFORMATION
  Report Type: Spontaneous
  Country: US (occurrence: US)
  Receive Date: 20250324
  Receipt Date: 20250429
  Transmission Date: 20250717
  Serious: No
  Sender: ALK-ABELLO
  Company Number: US-ALK-ABELLO A/S-2025AA000413

PATIENT

DRUGS (5)
  1. PISTACHIO NUT [Suspect]
     Active Substance: PISTACHIO
     Indication: Skin test
  2. PISTACHIO NUT [Suspect]
     Active Substance: PISTACHIO
  3. BREYNA [Concomitant]
     Active Substance: BUDESONIDE\FORMOTEROL FUMARATE
  4. ALBUTEROL [Concomitant]
     Active Substance: ALBUTEROL
  5. EPIPEN [Concomitant]
     Active Substance: EPINEPHRINE

REACTIONS (1)
  - False negative investigation result [Unknown]
